FAERS Safety Report 20177551 (Version 1)
Quarter: 2021Q4

REPORT INFORMATION
  Report Type: Spontaneous
  Country: None (occurrence: US)
  Receive Date: 20211213
  Receipt Date: 20211213
  Transmission Date: 20220303
  Serious: Yes (Other)
  Sender: FDA-Public Use
  Company Number: US-Imprimis NJOF-2122957

PATIENT
  Age: 75 Year
  Sex: Male

DRUGS (1)
  1. MOXIFLOXACIN\NEPAFENAC\PREDNISOLONE ACETATE [Suspect]
     Active Substance: MOXIFLOXACIN\NEPAFENAC\PREDNISOLONE ACETATE
     Route: 047

REACTIONS (3)
  - Insomnia [Unknown]
  - Restlessness [Unknown]
  - Dizziness [Unknown]
